FAERS Safety Report 9845587 (Version 1)
Quarter: 2013Q4

REPORT INFORMATION
  Report Type: Spontaneous
  Country: US (occurrence: None)
  Receive Date: 20131219
  Receipt Date: 20131219
  Transmission Date: 20140711
  Serious: Yes (Other)
  Sender: FDA-Public Use
  Company Number: 163-20785-13092392

PATIENT
  Age: 85 Year
  Sex: Male
  Weight: 53.1 kg

DRUGS (6)
  1. THALOMID (THALIDOMIDE) (100 MILLIGRAM, CAPSULES) [Suspect]
     Indication: PLASMA CELL MYELOMA
     Route: 048
     Dates: start: 201303
  2. CARDIZEM (DILTIAZEM HYDROCHLORIDE) [Concomitant]
  3. COLACE [Concomitant]
  4. COUMADIN (WARFARIN SODIUM) [Concomitant]
  5. DILANTIN (PHENYTOIN SODIUM) [Concomitant]
  6. OMEPRAZOLE [Concomitant]

REACTIONS (1)
  - Pancytopenia [None]
